FAERS Safety Report 5683274-9 (Version None)
Quarter: 2008Q1

REPORT INFORMATION
  Report Type: 
  Country: None (occurrence: None)
  Receive Date: 20080327
  Receipt Date: 20080318
  Transmission Date: 20080703
  Serious: Yes (Death, Hospitalization)
  Sender: FDA-Public Use
  Company Number: CH-PFIZER INC-2008003324

PATIENT
  Sex: Male

DRUGS (3)
  1. SU-011,248 [Suspect]
     Indication: HEPATIC NEOPLASM MALIGNANT
     Dosage: DAILY DOSE:37.5MG
     Route: 048
     Dates: start: 20071212, end: 20080124
  2. IBUPROFEN [Concomitant]
     Dosage: DAILY DOSE:100MG
     Route: 048
     Dates: start: 20071227, end: 20080109
  3. ACETAMINOPHEN [Concomitant]
     Dosage: DAILY DOSE:500MG
     Route: 048
     Dates: start: 20071227, end: 20080109

REACTIONS (6)
  - ARTHRALGIA [None]
  - BONE PAIN [None]
  - CONFUSIONAL STATE [None]
  - DISEASE PROGRESSION [None]
  - HEPATIC NEOPLASM MALIGNANT [None]
  - PYREXIA [None]
